FAERS Safety Report 9051175 (Version 1)
Quarter: 2013Q1

REPORT INFORMATION
  Report Type: Spontaneous
  Country: US (occurrence: US)
  Receive Date: 20130206
  Receipt Date: 20130206
  Transmission Date: 20140127
  Serious: Yes (Other)
  Sender: FDA-Public Use
  Company Number: US-SANOFI-AVENTIS-2013SA004075

PATIENT
  Sex: Male

DRUGS (1)
  1. ALLEGRA [Suspect]

REACTIONS (2)
  - Chronic sinusitis [Unknown]
  - Medication residue present [Unknown]
